FAERS Safety Report 23148638 (Version 1)
Quarter: 2023Q4

REPORT INFORMATION
  Report Type: Spontaneous
  Country: MX (occurrence: MX)
  Receive Date: 20231106
  Receipt Date: 20231106
  Transmission Date: 20240110
  Serious: Yes (Hospitalization)
  Sender: FDA-Public Use
  Company Number: MX-MYLANLABS-2023M1116684

PATIENT
  Age: 67 Year
  Sex: Female
  Weight: 82 kg

DRUGS (12)
  1. CELECOXIB [Suspect]
     Active Substance: CELECOXIB
     Indication: COVID-19
     Dosage: 200 MILLIGRAM, QD (DOSE: 200MG PER 24 HOURS)
     Route: 065
     Dates: start: 202101
  2. COLCHICINE [Suspect]
     Active Substance: COLCHICINE
     Indication: COVID-19
     Dosage: 1 MILLIGRAM, QD (DOSE: 1MG PER 24 HOURS)
     Route: 065
     Dates: start: 202101
  3. IVERMECTIN [Suspect]
     Active Substance: IVERMECTIN
     Indication: COVID-19
     Dosage: 24 MILLIGRAM
     Route: 065
     Dates: start: 202101
  4. IVERMECTIN [Suspect]
     Active Substance: IVERMECTIN
     Dosage: 12 MILLIGRAM (DAY 8)
     Route: 065
     Dates: start: 202101
  5. AZITHROMYCIN [Concomitant]
     Active Substance: AZITHROMYCIN
     Indication: Infection prophylaxis
     Dosage: 500 MILLIGRAM, QD
     Route: 065
     Dates: start: 202101, end: 202101
  6. VITAMIN D [Concomitant]
     Active Substance: VITAMIN D NOS
     Indication: Supplementation therapy
     Dosage: UNK, MONTHLY, DOSE: 100U/MONTH
     Route: 065
     Dates: start: 202101
  7. VITAMIN C [Concomitant]
     Active Substance: ASCORBIC ACID
     Indication: Supplementation therapy
     Dosage: 200 MILLIGRAM, QD
     Route: 065
     Dates: start: 202101
  8. ZINC [Concomitant]
     Active Substance: PYRITHIONE ZINC\ZINC\ZINC CHLORIDE
     Indication: Supplementation therapy
     Dosage: 10 MILLIGRAM, QD
     Route: 065
     Dates: start: 202101
  9. HEPARIN [Concomitant]
     Active Substance: HEPARIN SODIUM
     Indication: Anticoagulant therapy
     Dosage: UNK, BID, ~DOSE: 5000 U/12 H; ROUTE: TRANSCUTANEOUS
     Route: 065
     Dates: start: 202101
  10. CLOPIDOGREL [Concomitant]
     Active Substance: CLOPIDOGREL BISULFATE
     Indication: Anticoagulant therapy
     Dosage: 75 MILLIGRAM, QD
     Route: 065
     Dates: start: 202101
  11. ASPIRIN [Concomitant]
     Active Substance: ASPIRIN
     Indication: Thrombosis prophylaxis
     Dosage: 100 MILLIGRAM, QD
     Route: 065
     Dates: start: 202101
  12. FAMOTIDINE [Concomitant]
     Active Substance: FAMOTIDINE
     Indication: Antiallergic therapy
     Dosage: 40 MILLIGRAM, QD
     Route: 065
     Dates: start: 202101

REACTIONS (2)
  - Drug ineffective for unapproved indication [Unknown]
  - Off label use [Unknown]

NARRATIVE: CASE EVENT DATE: 20210101
